FAERS Safety Report 5683818-7 (Version None)
Quarter: 2008Q1

REPORT INFORMATION
  Report Type: 
  Country: None (occurrence: None)
  Receive Date: 20080328
  Receipt Date: 20080318
  Transmission Date: 20080703
  Serious: Yes (Other)
  Sender: FDA-Public Use
  Company Number: RU-WYE-H02855008

PATIENT
  Sex: Male
  Weight: 70 kg

DRUGS (2)
  1. TEMSIROLIMUS [Suspect]
     Indication: RHABDOMYOSARCOMA
     Dosage: 105 MG (75%) ONCE WEEKLY
     Route: 042
     Dates: start: 20080212, end: 20080219
  2. MARCUMAR [Concomitant]
     Dosage: NOT PROVIDED
     Route: 065
     Dates: start: 20070401

REACTIONS (5)
  - FURUNCLE [None]
  - HYPERHIDROSIS [None]
  - MUCOSAL INFLAMMATION [None]
  - PLATELET COUNT INCREASED [None]
  - STOMATITIS [None]
